FAERS Safety Report 13459285 (Version 3)
Quarter: 2017Q2

REPORT INFORMATION
  Report Type: Report from Study
  Country: US (occurrence: US)
  Receive Date: 20170419
  Receipt Date: 20170531
  Transmission Date: 20170830
  Serious: Yes (Hospitalization)
  Sender: FDA-Public Use
  Company Number: US-GILEAD-2017-0267713

PATIENT
  Age: 17 Year
  Sex: Female
  Weight: 55 kg

DRUGS (4)
  1. AMBRISENTAN [Suspect]
     Active Substance: AMBRISENTAN
     Indication: PULMONARY ARTERIAL HYPERTENSION
     Dosage: 10 MG, QD
     Route: 048
     Dates: start: 2012
  2. ADCIRCA [Concomitant]
     Active Substance: TADALAFIL
  3. VELETRI [Concomitant]
     Active Substance: EPOPROSTENOL
  4. WARFARIN [Concomitant]
     Active Substance: WARFARIN

REACTIONS (4)
  - Device occlusion [Recovered/Resolved]
  - Device leakage [Recovered/Resolved]
  - Catheter placement [Recovered/Resolved]
  - Off label use [Not Recovered/Not Resolved]

NARRATIVE: CASE EVENT DATE: 20170410
